FAERS Safety Report 6915841-6 (Version None)
Quarter: 2010Q3

REPORT INFORMATION
  Report Type: 
  Country: None (occurrence: None)
  Receive Date: 20100804
  Receipt Date: 20100717
  Transmission Date: 20110219
  Serious: Yes (Hospitalization, Other)
  Sender: FDA-Public Use
  Company Number: 2010AP001483

PATIENT
  Age: 30 Year
  Sex: Male

DRUGS (1)
  1. ALLOPURINOL [Suspect]
     Indication: HYPERURICAEMIA

REACTIONS (2)
  - ANAEMIA HAEMOLYTIC AUTOIMMUNE [None]
  - DRUG RASH WITH EOSINOPHILIA AND SYSTEMIC SYMPTOMS [None]
